FAERS Safety Report 11880672 (Version 2)
Quarter: 2016Q2

REPORT INFORMATION
  Report Type: Report from Study
  Country: HR (occurrence: HR)
  Receive Date: 20151230
  Receipt Date: 20160518
  Transmission Date: 20160815
  Serious: Yes (Hospitalization, Other)
  Sender: FDA-Public Use
  Company Number: HR-TEVA-621622ISR

PATIENT
  Age: 49 Year
  Sex: Male
  Weight: 120 kg

DRUGS (18)
  1. NORVASC [Concomitant]
     Active Substance: AMLODIPINE BESYLATE
     Indication: HYPERTENSION
     Dosage: 5MG
     Route: 065
     Dates: start: 20100101
  2. VALCYTE [Concomitant]
     Active Substance: VALGANCICLOVIR HYDROCHLORIDE
     Dosage: 450MG
     Route: 065
     Dates: start: 20151116
  3. SANDIMMUN NEORAL [Suspect]
     Active Substance: CYCLOSPORINE
     Route: 065
     Dates: start: 20151130
  4. VALCYTE [Concomitant]
     Active Substance: VALGANCICLOVIR HYDROCHLORIDE
     Indication: INFECTION PROPHYLAXIS
     Route: 065
     Dates: start: 20151025
  5. EUTHYROX [Concomitant]
     Active Substance: LEVOTHYROXINE SODIUM
     Indication: HYPOTHYROIDISM
     Dosage: 125 MICROGRAM
     Route: 065
     Dates: start: 20120101
  6. PEPTORAN [Concomitant]
     Active Substance: RANITIDINE HYDROCHLORIDE
     Indication: PROPHYLAXIS
     Dosage: 300 MILLIGRAM DAILY; 150MG, BID
     Route: 065
     Dates: start: 20151116
  7. SANDIMMUN NEORAL [Suspect]
     Active Substance: CYCLOSPORINE
     Dosage: 100 MILLIGRAM DAILY; 50MG, BID
     Route: 065
     Dates: start: 20151117
  8. SANDIMMUN NEORAL [Suspect]
     Active Substance: CYCLOSPORINE
     Dosage: 175 MILLIGRAM DAILY; 175 MG, QD (75+100MG)
     Route: 065
  9. MYFORTIC [Suspect]
     Active Substance: MYCOPHENOLATE SODIUM
     Indication: RENAL TRANSPLANT
     Dosage: 1440 MILLIGRAM DAILY; 720MG, BID
     Route: 065
     Dates: start: 20151022, end: 20151113
  10. PHYSIOTENS [Concomitant]
     Active Substance: MOXONIDINE
     Indication: HYPERTENSION
     Dosage: .6 MILLIGRAM DAILY; 0.6MG, QD (0.2 +0.4MG)
     Route: 065
     Dates: start: 20100101
  11. MYFORTIC [Suspect]
     Active Substance: MYCOPHENOLATE SODIUM
     Dosage: 1080  DAILY; 540 MG, BID
     Route: 065
     Dates: start: 20151114
  12. SANDIMMUN NEORAL [Suspect]
     Active Substance: CYCLOSPORINE
     Indication: RENAL TRANSPLANT
     Dosage: 125 MILLIGRAM DAILY; 125MG, (100+125 MG) QD
     Route: 065
     Dates: start: 20151022, end: 20151113
  13. EQUORAL [Concomitant]
     Active Substance: CYCLOSPORINE
     Indication: RENAL TRANSPLANT
     Route: 065
  14. INSULIN [Concomitant]
     Active Substance: INSULIN NOS
     Indication: DIABETES MELLITUS
     Dosage: DEPENDING ON BLOOD SUGAR LEVEL
     Route: 065
     Dates: start: 20050101
  15. SINERSUL [Suspect]
     Active Substance: SULFAMETHOXAZOLE\TRIMETHOPRIM
     Indication: INFECTION PROPHYLAXIS
     Dosage: 480MG, QOD
     Route: 065
     Dates: start: 20151025
  16. CONTROLOC [Suspect]
     Active Substance: PANTOPRAZOLE SODIUM
     Indication: PROPHYLAXIS
     Dosage: 40MG
     Route: 065
     Dates: start: 20151022, end: 20151113
  17. DECORTIN 20 [Concomitant]
     Indication: RENAL TRANSPLANT
     Dosage: 15MG
     Route: 065
     Dates: start: 20151022
  18. CIPROFLOXACIN. [Concomitant]
     Active Substance: CIPROFLOXACIN
     Indication: BK VIRUS INFECTION
     Dosage: 250MG
     Route: 065

REACTIONS (6)
  - Urinary tract infection [Recovered/Resolved]
  - Blood creatinine increased [Not Recovered/Not Resolved]
  - Pneumonia [Recovered/Resolved]
  - Leukopenia [Recovered/Resolved]
  - Blood creatinine increased [Recovered/Resolved]
  - Inflammation [Recovered/Resolved]

NARRATIVE: CASE EVENT DATE: 20151112
